FAERS Safety Report 5331880-3 (Version None)
Quarter: 2007Q2

REPORT INFORMATION
  Report Type: 
  Country: None (occurrence: None)
  Receive Date: 20070523
  Receipt Date: 20070514
  Transmission Date: 20071010
  Serious: Yes (Hospitalization, Other)
  Sender: FDA-Public Use
  Company Number: HQWYE104114JUL04

PATIENT
  Sex: Female

DRUGS (2)
  1. PREMPRO [Suspect]
     Dosage: UNKNOWN
     Dates: start: 19960415, end: 20020502
  2. PREMARIN [Suspect]
     Dosage: UNKNOWN
     Dates: start: 19960410, end: 20020502

REACTIONS (2)
  - ARTERIAL OCCLUSIVE DISEASE [None]
  - THROMBOSIS [None]
